FAERS Safety Report 4519856-7 (Version None)
Quarter: 2004Q4

REPORT INFORMATION
  Report Type: 
  Country: None (occurrence: None)
  Receive Date: 20041207
  Receipt Date: 20040625
  Transmission Date: 20050328
  Serious: Yes (Hospitalization)
  Sender: FDA-Public Use
  Company Number: 200412218JP

PATIENT
  Age: 71 Year
  Sex: Male

DRUGS (10)
  1. ARAVA [Suspect]
     Indication: RHEUMATOID ARTHRITIS
     Route: 048
     Dates: start: 20031204, end: 20041122
  2. PREDNISOLONE [Suspect]
     Indication: ANTIINFLAMMATORY THERAPY
     Route: 048
     Dates: start: 20031104, end: 20040603
  3. PREDNISOLONE [Suspect]
     Indication: INTERSTITIAL LUNG DISEASE
     Route: 048
     Dates: start: 20031104, end: 20040603
  4. KLARICID [Concomitant]
     Indication: INTERSTITIAL LUNG DISEASE
     Route: 048
     Dates: start: 20031104, end: 20040603
  5. AZULFIDINE [Concomitant]
     Indication: RHEUMATOID ARTHRITIS
     Route: 048
     Dates: start: 20031104, end: 20040603
  6. VOLTAREN [Concomitant]
     Indication: ANTIINFLAMMATORY THERAPY
     Route: 048
     Dates: start: 20031104, end: 20040603
  7. ALTAT [Concomitant]
     Indication: GASTRITIS
     Route: 048
     Dates: start: 20031104, end: 20040603
  8. CYTOTEC [Concomitant]
     Indication: GASTRITIS
     Route: 048
     Dates: start: 20031104, end: 20040603
  9. DIDRONEL [Concomitant]
     Indication: OSTEOPOROSIS PROPHYLAXIS
     Route: 048
     Dates: start: 20040513, end: 20040526
  10. METHOTREXATE [Concomitant]
     Indication: RHEUMATOID ARTHRITIS
     Route: 048
     Dates: start: 19990401, end: 19990601

REACTIONS (2)
  - ACUTE MYOCARDIAL INFARCTION [None]
  - DYSPEPSIA [None]
